FAERS Safety Report 14896001 (Version 2)
Quarter: 2018Q2

REPORT INFORMATION
  Report Type: Spontaneous
  Country: CH (occurrence: CH)
  Receive Date: 20180515
  Receipt Date: 20180620
  Transmission Date: 20180711
  Serious: Yes (Hospitalization, Other)
  Sender: FDA-Public Use
  Company Number: CH-ROCHE-2118217

PATIENT
  Age: 75 Year
  Sex: Male

DRUGS (7)
  1. IRINOTECAN [Concomitant]
     Active Substance: IRINOTECAN
     Indication: SMALL INTESTINE ADENOCARCINOMA
     Route: 065
     Dates: start: 20180124
  2. XELODA [Suspect]
     Active Substance: CAPECITABINE
     Indication: SMALL INTESTINE ADENOCARCINOMA
     Route: 048
     Dates: start: 20170614, end: 20180212
  3. 5-FLUOROURACIL [Suspect]
     Active Substance: FLUOROURACIL
     Indication: SMALL INTESTINE ADENOCARCINOMA
     Route: 065
     Dates: start: 2017
  4. VECTIBIX [Suspect]
     Active Substance: PANITUMUMAB
     Indication: SMALL INTESTINE ADENOCARCINOMA
     Route: 065
     Dates: end: 201802
  5. OXALIPLATIN. [Concomitant]
     Active Substance: OXALIPLATIN
     Indication: SMALL INTESTINE ADENOCARCINOMA
     Route: 065
     Dates: start: 20170614, end: 20180212
  6. FOLINIC ACID [Concomitant]
     Active Substance: LEUCOVORIN
     Indication: SMALL INTESTINE ADENOCARCINOMA
     Route: 065
     Dates: start: 20180124
  7. 5-FU [Concomitant]
     Active Substance: FLUOROURACIL
     Indication: SMALL INTESTINE ADENOCARCINOMA
     Route: 065
     Dates: start: 20180124

REACTIONS (3)
  - Disease progression [Not Recovered/Not Resolved]
  - Transient ischaemic attack [Recovered/Resolved]
  - Electrolyte imbalance [Recovered/Resolved]

NARRATIVE: CASE EVENT DATE: 20171221
